FAERS Safety Report 8611419-7 (Version None)
Quarter: 2012Q3

REPORT INFORMATION
  Report Type: 
  Country: None (occurrence: None)
  Receive Date: 20120822
  Receipt Date: 20120815
  Transmission Date: 20120928
  Serious: Yes (Hospitalization)
  Sender: FDA-Public Use
  Company Number: BR-B.I. PHARMACEUTICALS,INC./RIDGEFIELD-2012-BR-00731BR

PATIENT
  Sex: Female

DRUGS (6)
  1. PRADAXA [Suspect]
     Indication: PELVIC FRACTURE
     Dosage: 220 MG
     Route: 048
     Dates: start: 20120611, end: 20120629
  2. CELEBREX [Concomitant]
     Indication: FRACTURE PAIN
     Dates: start: 20120611, end: 20120629
  3. TRAMADOL HYDROCHLORIDE [Concomitant]
     Indication: FRACTURE PAIN
     Dates: start: 20120611, end: 20120629
  4. CAPTOPRIL [Concomitant]
     Indication: HYPERTENSION
  5. ATENOLOL [Concomitant]
     Indication: ARRHYTHMIA
     Dosage: 25 MG
  6. GLYBURIDE [Concomitant]
     Indication: DIABETES MELLITUS

REACTIONS (6)
  - EXTERNAL EAR INFLAMMATION [None]
  - CONFUSIONAL STATE [None]
  - DIABETES MELLITUS [None]
  - AGITATION [None]
  - SWELLING [None]
  - ESCHAR [None]
